FAERS Safety Report 4283794-8 (Version None)
Quarter: 2004Q1

REPORT INFORMATION
  Report Type: 
  Country: None (occurrence: None)
  Receive Date: 20040115
  Receipt Date: 20030618
  Transmission Date: 20041129
  Serious: Yes (Other)
  Sender: FDA-Public Use
  Company Number: NSADSS2003019158

PATIENT
  Age: 82 Year
  Sex: Female
  Weight: 73.9363 kg

DRUGS (1)
  1. DOXIL [Suspect]
     Indication: OVARIAN CANCER
     Dosage: 40 MG/M2, 1 IN 4 WEEK, INTRAVENOUS DRIP
     Route: 041
     Dates: start: 20030218

REACTIONS (2)
  - ASCITES [None]
  - CONDITION AGGRAVATED [None]
